FAERS Safety Report 5615375-5 (Version None)
Quarter: 2008Q1

REPORT INFORMATION
  Report Type: 
  Country: None (occurrence: None)
  Receive Date: 20080131
  Receipt Date: 20080121
  Transmission Date: 20080703
  Serious: Yes (Other)
  Sender: FDA-Public Use
  Company Number: 2008US000308

PATIENT
  Age: 43 Year
  Sex: Female

DRUGS (1)
  1. PROGRAF [Suspect]
     Indication: RENAL TRANSPLANT
     Dosage: 5 MG, UID/QD,ORAL
     Route: 048

REACTIONS (4)
  - ANORECTAL DISORDER [None]
  - ANXIETY [None]
  - DIARRHOEA [None]
  - TREMOR [None]
